FAERS Safety Report 21340502 (Version 1)
Quarter: 2022Q3

REPORT INFORMATION
  Report Type: Spontaneous
  Country: US (occurrence: None)
  Receive Date: 20220915
  Receipt Date: 20220915
  Transmission Date: 20221026
  Serious: No
  Sender: FDA-Public Use
  Company Number: None

PATIENT
  Age: 46 Year
  Sex: Male

DRUGS (1)
  1. TALTZ [Suspect]
     Active Substance: IXEKIZUMAB
     Indication: Psoriasis
     Dosage: FREQUENCY : AS DIRECTED;?INJECT SOMG (1 PEN) SUBCUTANEOUSLY AT WEEK 12 THEN?EVERY 4 WEEKS AS DIRECTE
     Route: 058
     Dates: start: 202207

REACTIONS (2)
  - Sinusitis [None]
  - Therapy interrupted [None]
